FAERS Safety Report 23918201 (Version 2)
Quarter: 2024Q2

REPORT INFORMATION
  Report Type: Report from Study
  Country: TW (occurrence: TW)
  Receive Date: 20240530
  Receipt Date: 20240612
  Transmission Date: 20240716
  Serious: Yes (Hospitalization, Other)
  Sender: FDA-Public Use
  Company Number: TW-ABBVIE-5776918

PATIENT
  Sex: Female

DRUGS (1)
  1. RINVOQ [Suspect]
     Active Substance: UPADACITINIB
     Indication: Rheumatoid arthritis
     Route: 048
     Dates: start: 20221004

REACTIONS (4)
  - Loss of consciousness [Unknown]
  - Headache [Unknown]
  - Cerebrovascular accident [Unknown]
  - Aneurysm ruptured [Unknown]

NARRATIVE: CASE EVENT DATE: 20240101
